FAERS Safety Report 4835904-9 (Version None)
Quarter: 2005Q4

REPORT INFORMATION
  Report Type: 
  Country: None (occurrence: None)
  Receive Date: 20051123
  Receipt Date: 20051111
  Transmission Date: 20060501
  Serious: Yes (Death, Hospitalization)
  Sender: FDA-Public Use
  Company Number: US-BRISTOL-MYERS SQUIBB COMPANY-13179098

PATIENT
  Age: 70 Year
  Sex: Female

DRUGS (11)
  1. CETUXIMAB [Suspect]
     Indication: NON-SMALL CELL LUNG CANCER
     Route: 042
     Dates: start: 20051107, end: 20051107
  2. CARBOPLATIN [Suspect]
     Indication: NON-SMALL CELL LUNG CANCER
     Route: 042
     Dates: start: 20051107, end: 20051107
  3. TAXOL [Suspect]
     Indication: NON-SMALL CELL LUNG CANCER
     Route: 042
     Dates: start: 20051107, end: 20051107
  4. CONTRAST AGENT [Suspect]
     Route: 042
     Dates: start: 20051103
  5. MULTI-VITAMIN [Concomitant]
     Dates: start: 20000101
  6. HYDROCHLOROTHIAZIDE [Concomitant]
     Dates: start: 20000101
  7. ASPIRIN [Concomitant]
     Dates: start: 20000101
  8. GLUCOTROL XL [Concomitant]
  9. METFORMINE [Concomitant]
     Dates: start: 20000101
  10. ATENOLOL [Concomitant]
     Dates: start: 20000101
  11. MINOCYCLINE [Concomitant]
     Dates: start: 20050711

REACTIONS (2)
  - MALIGNANT NEOPLASM PROGRESSION [None]
  - RENAL FAILURE [None]
